FAERS Safety Report 21880758 (Version 1)
Quarter: 2023Q1

REPORT INFORMATION
  Report Type: Spontaneous
  Country: US (occurrence: None)
  Receive Date: 20230117
  Receipt Date: 20230117
  Transmission Date: 20230418
  Serious: No
  Sender: FDA-Public Use
  Company Number: None

PATIENT
  Age: 52 Year
  Sex: Female
  Weight: 71.21 kg

DRUGS (1)
  1. STELARA [Suspect]
     Active Substance: USTEKINUMAB
     Indication: Psoriatic arthropathy
     Dosage: INJECT 45MG  SUBCUTANEOUSLY  AT WEEK 0 AND WEEK 4 AS DIRECTED
     Route: 058
     Dates: start: 202011

REACTIONS (2)
  - Bronchitis [None]
  - Condition aggravated [None]
